FAERS Safety Report 6207517-8 (Version None)
Quarter: 2009Q2

REPORT INFORMATION
  Report Type: 
  Country: None (occurrence: None)
  Receive Date: 20090526
  Receipt Date: 20090511
  Transmission Date: 20091009
  Serious: Yes (Other)
  Sender: FDA-Public Use
  Company Number: 1000006358

PATIENT
  Age: 64 Year
  Sex: Female

DRUGS (3)
  1. CELEXA [Suspect]
     Indication: BEREAVEMENT
     Dosage: 20 MG (20 MG, 1 IN 1 D), ORAL
     Route: 048
     Dates: start: 20060101
  2. CELEXA [Suspect]
     Indication: BEREAVEMENT
     Dosage: 20 MG (20 MG, 1 IN 1 D), ORAL
     Route: 048
     Dates: start: 20090101
  3. PROPRANOLOL [Concomitant]

REACTIONS (3)
  - ANURIA [None]
  - INDIFFERENCE [None]
  - RENAL IMPAIRMENT [None]
